FAERS Safety Report 7582613-1 (Version None)
Quarter: 2011Q2

REPORT INFORMATION
  Report Type: 
  Country: None (occurrence: None)
  Receive Date: 20110630
  Receipt Date: 20110622
  Transmission Date: 20111010
  Serious: Yes (Death, Other)
  Sender: FDA-Public Use
  Company Number: US-ELI_LILLY_AND_COMPANY-US201101004951

PATIENT
  Sex: Female
  Weight: 48.073 kg

DRUGS (22)
  1. FUROSEMIDE [Concomitant]
     Dosage: 40 MG, OTHER
  2. LEVOTHYROXINE SODIUM [Concomitant]
     Dosage: 125 UG, QD
  3. LIDODERM [Concomitant]
     Dosage: 700 MG, OTHER
  4. RELISTOR [Concomitant]
  5. CYCLOBENAZPRINE [Concomitant]
  6. FORTEO [Suspect]
     Indication: OSTEOPOROSIS
     Dosage: 20 UG, QD
     Route: 058
     Dates: start: 20101201
  7. ESTRADIOL [Concomitant]
     Dosage: 2 MG, OTHER
  8. PROMETRIUM [Concomitant]
  9. ALLERTEC [Concomitant]
  10. VITAMIN D [Concomitant]
     Indication: VITAMIN D DECREASED
     Dosage: UNK UNK, OTHER
  11. BETHANECHOL CHLORIDE [Concomitant]
     Dosage: 25 MG, QD
  12. AMITIZA [Concomitant]
     Dosage: 24 MG, BID
  13. CALCITONIN [Concomitant]
  14. CYMBALTA [Concomitant]
     Dosage: 60 MG, BID
  15. TIZANIDINE HCL [Concomitant]
     Dosage: 4 MG, QD
  16. FLECTOR                            /00372302/ [Concomitant]
  17. POTASSIUM CITRATE [Concomitant]
     Dosage: 10 MEQ, QD
  18. AVINZA [Concomitant]
     Dosage: 60 MG, QD
  19. ACETAMINOPHEN AND HYDROCODONE BITARTRATE [Concomitant]
     Dosage: UNK
  20. PANTOPRAZOLE SODIUM [Concomitant]
     Dosage: 40 MG, QD
  21. SINGULAIR [Concomitant]
     Dosage: 10 MG, QD
  22. SUMATRIPTAN SUCCINATE [Concomitant]
     Dosage: 5 MG, OTHER

REACTIONS (3)
  - VIRAL INFECTION [None]
  - PANCREATIC CARCINOMA METASTATIC [None]
  - NASOPHARYNGITIS [None]
